FAERS Safety Report 6584789-1 (Version None)
Quarter: 2010Q1

REPORT INFORMATION
  Report Type: 
  Country: None (occurrence: None)
  Receive Date: 20100217
  Receipt Date: 20100208
  Transmission Date: 20100710
  Serious: Yes (Other)
  Sender: FDA-Public Use
  Company Number: JP-B.I. PHARMACEUTICALS,INC./RIDGEFIELD-2010-BP-01529NB

PATIENT
  Age: 59 Year
  Sex: Female

DRUGS (6)
  1. MICARDIS [Suspect]
     Indication: HYPERTENSION
     Route: 048
  2. PLETAL [Suspect]
     Route: 065
  3. AMLODIPINE [Concomitant]
     Route: 065
  4. ALDECIN [Concomitant]
     Route: 065
  5. GASPORT [Concomitant]
     Route: 065
  6. PRANLUKAST [Concomitant]
     Route: 065

REACTIONS (1)
  - EOSINOPHILIC PNEUMONIA [None]
